FAERS Safety Report 4661335-0 (Version None)
Quarter: 2005Q2

REPORT INFORMATION
  Report Type: 
  Country: None (occurrence: None)
  Receive Date: 20050511
  Receipt Date: 20050426
  Transmission Date: 20051028
  Serious: Yes (Death)
  Sender: FDA-Public Use
  Company Number: D01200400601

PATIENT
  Age: 47 Year
  Sex: Male
  Weight: 103 kg

DRUGS (17)
  1. CISPLATIN [Suspect]
     Indication: SMALL CELL LUNG CANCER EXTENSIVE STAGE
     Dosage: 80 MG/M2 CONT - INTRAVENOUS NOS
     Route: 042
     Dates: start: 20031022, end: 20031022
  2. ETOPOSIDE [Suspect]
     Indication: SMALL CELL LUNG CANCER EXTENSIVE STAGE
     Dosage: 120 MG/M2 GIVEN ON DAYS 1, 2 AND 3, IN A 30-MINUTE INFUSION - INTRAVENOUS NOS
     Route: 042
     Dates: start: 20031022, end: 20031024
  3. MOCLOBEMIDE [Concomitant]
  4. ZOPICLONE [Concomitant]
  5. DEXAMETHASONE SODIUM PHOSPHATE [Concomitant]
  6. FUROSEMIDE [Concomitant]
  7. KETOPROFEN [Concomitant]
  8. AMINOPHYLLINE [Concomitant]
  9. ESTAZOLAM [Concomitant]
  10. PERINDOPRIL [Concomitant]
  11. INDAPAMIDE [Concomitant]
  12. HYDROCORTISONE [Concomitant]
  13. CAPTOPRIL [Concomitant]
  14. ONDANSETRON HYDROCHLORIDE [Concomitant]
  15. THEOPHYLLINE [Concomitant]
  16. BITOLTEROL MESILATE [Concomitant]
  17. CLONAZEPAM [Concomitant]

REACTIONS (7)
  - MALIGNANT NEOPLASM PROGRESSION [None]
  - METASTASES TO ADRENALS [None]
  - METASTASES TO LIVER [None]
  - METASTASES TO LYMPH NODES [None]
  - PLEURAL EFFUSION [None]
  - PULMONARY HAEMORRHAGE [None]
  - SMALL CELL LUNG CANCER EXTENSIVE STAGE [None]
